APPROVED DRUG PRODUCT: OCTREOTIDE ACETATE
Active Ingredient: OCTREOTIDE ACETATE
Strength: EQ 0.2MG BASE/ML
Dosage Form/Route: INJECTABLE;INJECTION
Application: A077450 | Product #001 | TE Code: AP
Applicant: FRESENIUS KABI USA LLC
Approved: Feb 10, 2006 | RLD: No | RS: No | Type: RX